FAERS Safety Report 24462000 (Version 1)
Quarter: 2024Q4

REPORT INFORMATION
  Report Type: Report from Study
  Country: US (occurrence: US)
  Receive Date: 20241018
  Receipt Date: 20241018
  Transmission Date: 20250115
  Serious: Yes (Death, Other)
  Sender: TAKEDA
  Company Number: US-TAKEDA-2024TUS104594

PATIENT
  Age: 55 Year
  Sex: Female

DRUGS (4)
  1. PONATINIB [Suspect]
     Active Substance: PONATINIB
     Indication: Acute lymphocytic leukaemia
     Dosage: UNK
     Route: 065
  2. POSACONAZOLE [Suspect]
     Active Substance: POSACONAZOLE
     Indication: Acute lymphocytic leukaemia
     Dosage: UNK
     Route: 065
  3. DECITABINE [Suspect]
     Active Substance: DECITABINE
     Indication: Acute lymphocytic leukaemia
     Dosage: UNK
     Route: 065
  4. VENETOCLAX [Suspect]
     Active Substance: VENETOCLAX
     Indication: Acute lymphocytic leukaemia
     Dosage: UNK
     Route: 065

REACTIONS (3)
  - Acute lymphocytic leukaemia [Fatal]
  - Drug-induced liver injury [Unknown]
  - Drug interaction [Unknown]
